FAERS Safety Report 5051760-0 (Version None)
Quarter: 2006Q3

REPORT INFORMATION
  Report Type: 
  Country: None (occurrence: None)
  Receive Date: 20060713
  Receipt Date: 20060713
  Transmission Date: 20061208
  Serious: Yes (Life-Threatening, Hospitalization)
  Sender: FDA-Public Use
  Company Number: None

PATIENT
  Age: 16 Year
  Sex: Female
  Weight: 50 kg

DRUGS (2)
  1. LAMOTRIGINE [Suspect]
     Indication: CONVULSION
     Dosage: 25 MG QOD
     Dates: start: 20060609, end: 20060620
  2. VALPROIC ACID [Suspect]
     Indication: CONVULSION
     Dosage: 1500 MG QHS

REACTIONS (6)
  - GAIT DISTURBANCE [None]
  - HYPOTENSION [None]
  - NAUSEA [None]
  - PHARYNGEAL ERYTHEMA [None]
  - PYREXIA [None]
  - RASH MORBILLIFORM [None]
